FAERS Safety Report 15632956 (Version 1)
Quarter: 2018Q4

REPORT INFORMATION
  Report Type: Spontaneous
  Country: US (occurrence: US)
  Receive Date: 20181119
  Receipt Date: 20181119
  Transmission Date: 20190205
  Serious: Yes (Death)
  Sender: FDA-Public Use
  Company Number: None

PATIENT
  Sex: Male

DRUGS (22)
  1. ITRACONAZOLE. [Concomitant]
     Active Substance: ITRACONAZOLE
  2. MAG OXIDE [Concomitant]
     Active Substance: MAGNESIUM OXIDE
  3. MUCINEX [Concomitant]
     Active Substance: GUAIFENESIN
  4. PROGRAF [Concomitant]
     Active Substance: TACROLIMUS\TACROLIMUS ANHYDROUS
  5. LANTUS [Concomitant]
     Active Substance: INSULIN GLARGINE
  6. LOPERAMIDE [Concomitant]
     Active Substance: LOPERAMIDE
  7. LOPRESSOR [Concomitant]
     Active Substance: METOPROLOL TARTRATE
  8. OMEPRAZOLE. [Concomitant]
     Active Substance: OMEPRAZOLE
  9. BACTRIM [Concomitant]
     Active Substance: SULFAMETHOXAZOLE\TRIMETHOPRIM
  10. MELATONIN [Concomitant]
     Active Substance: MELATONIN
  11. NIFEDICAL XL [Concomitant]
     Active Substance: NIFEDIPINE
  12. PANTOPRAZOLE [Concomitant]
     Active Substance: PANTOPRAZOLE
  13. CALCIUM [Concomitant]
     Active Substance: CALCIUM
  14. NASONEX [Concomitant]
     Active Substance: MOMETASONE FUROATE
  15. PSYLLIUM [Concomitant]
     Active Substance: PLANTAGO SEED
  16. GABAPENTIN. [Concomitant]
     Active Substance: GABAPENTIN
  17. PREDNISONE. [Concomitant]
     Active Substance: PREDNISONE
  18. METOPROL TAR [Concomitant]
  19. NORTRIPTYLIN [Concomitant]
     Active Substance: NORTRIPTYLINE
  20. TACROLIMUS. [Suspect]
     Active Substance: TACROLIMUS
     Indication: LUNG TRANSPLANT
     Route: 048
     Dates: start: 20170616
  21. HUMALOG [Concomitant]
     Active Substance: INSULIN LISPRO
  22. ENSURE [Concomitant]
     Active Substance: AMINO ACIDS\DEXTROSE\ELECTROLYTES NOS\SOYBEAN OIL\VITAMINS

REACTIONS (1)
  - Death [None]
